FAERS Safety Report 19262925 (Version 3)
Quarter: 2021Q3

REPORT INFORMATION
  Report Type: Spontaneous
  Country: TR (occurrence: TR)
  Receive Date: 20210517
  Receipt Date: 20210910
  Transmission Date: 20211014
  Serious: Yes (Hospitalization)
  Sender: FDA-Public Use
  Company Number: TR-NOVOPROD-810897

PATIENT
  Age: 10 Year
  Sex: Male
  Weight: 16 kg

DRUGS (3)
  1. LEVOTIRON [Concomitant]
     Active Substance: LEVOTHYROXINE SODIUM
     Indication: GOITRE CONGENITAL
     Dosage: 70 MG, QD
     Route: 048
  2. NORDITROPIN [Suspect]
     Active Substance: SOMATROPIN
     Dosage: 5 MG, QD (RESTARTED)
     Route: 058
  3. NORDITROPIN [Suspect]
     Active Substance: SOMATROPIN
     Indication: GROWTH HORMONE DEFICIENCY
     Dosage: 0.5 MG, QD
     Route: 058
     Dates: start: 20210304, end: 20210423

REACTIONS (1)
  - Localised infection [Recovered/Resolved]

NARRATIVE: CASE EVENT DATE: 20210323
